FAERS Safety Report 24177888 (Version 13)
Quarter: 2025Q3

REPORT INFORMATION
  Report Type: Report from Study
  Country: US (occurrence: US)
  Receive Date: 20240806
  Receipt Date: 20250903
  Transmission Date: 20251021
  Serious: Yes (Other)
  Sender: BOEHRINGER INGELHEIM
  Company Number: US-BoehringerIngelheim-2024-BI-033571

PATIENT
  Age: 63 Year
  Sex: Female

DRUGS (5)
  1. SPEVIGO [Suspect]
     Active Substance: SPESOLIMAB-SBZO
     Indication: Generalised pustular psoriasis
     Dates: start: 20240724, end: 20240724
  2. SPEVIGO [Suspect]
     Active Substance: SPESOLIMAB-SBZO
     Dates: start: 202407, end: 20240926
  3. SPEVIGO [Suspect]
     Active Substance: SPESOLIMAB-SBZO
  4. SPEVIGO [Suspect]
     Active Substance: SPESOLIMAB-SBZO
     Dates: start: 202403
  5. SPEVIGO [Suspect]
     Active Substance: SPESOLIMAB-SBZO
     Dates: start: 20240319, end: 20241218

REACTIONS (14)
  - Generalised pustular psoriasis [Not Recovered/Not Resolved]
  - Generalised pustular psoriasis [Not Recovered/Not Resolved]
  - Generalised pustular psoriasis [Not Recovered/Not Resolved]
  - Headache [Not Recovered/Not Resolved]
  - Lethargy [Not Recovered/Not Resolved]
  - Diarrhoea [Recovering/Resolving]
  - Hypoglycaemia [Recovering/Resolving]
  - Pruritus [Recovering/Resolving]
  - Insomnia [Recovering/Resolving]
  - Sleep deficit [Unknown]
  - Nausea [Not Recovered/Not Resolved]
  - Memory impairment [Recovered/Resolved]
  - Gait disturbance [Unknown]
  - Product dose omission issue [Unknown]

NARRATIVE: CASE EVENT DATE: 20240701
